FAERS Safety Report 18479548 (Version 1)
Quarter: 2020Q4

REPORT INFORMATION
  Report Type: Spontaneous
  Country: US (occurrence: US)
  Receive Date: 20201109
  Receipt Date: 20201109
  Transmission Date: 20210114
  Serious: Yes (Hospitalization, Other)
  Sender: FDA-Public Use
  Company Number: US-SA-2020SA284756

PATIENT

DRUGS (5)
  1. PREDNISONE. [Suspect]
     Active Substance: PREDNISONE
     Dosage: 50 MG, QD
     Route: 048
  2. ETOPOSIDE. [Suspect]
     Active Substance: ETOPOSIDE
     Indication: HAEMOPHAGOCYTIC LYMPHOHISTIOCYTOSIS
     Dosage: 149.3 MG/M2 TWICE WEEKLY FOR PLANNED 2-WEEK COURSE
  3. CAMPATH [Suspect]
     Active Substance: ALEMTUZUMAB
     Indication: HAEMOPHAGOCYTIC LYMPHOHISTIOCYTOSIS
     Dosage: UNK
  4. DEXAMETHASONE. [Suspect]
     Active Substance: DEXAMETHASONE
     Indication: HAEMOPHAGOCYTIC LYMPHOHISTIOCYTOSIS
     Dosage: TAPER
  5. DEXAMETHASONE. [Suspect]
     Active Substance: DEXAMETHASONE
     Dosage: 8 MG, Q12H FOR 28 DOSES

REACTIONS (15)
  - Enterococcal infection [Unknown]
  - Intestinal perforation [Unknown]
  - Enterococcal bacteraemia [Unknown]
  - Off label use [Unknown]
  - Wheelchair user [Unknown]
  - Osteomyelitis bacterial [Unknown]
  - Osteonecrosis [Unknown]
  - Abscess limb [Unknown]
  - Hyperglycaemia [Unknown]
  - Peritonitis [Unknown]
  - Bone infarction [Unknown]
  - Bone pain [Unknown]
  - Pancytopenia [Unknown]
  - Gait disturbance [Not Recovered/Not Resolved]
  - Pelvic abscess [Unknown]
